FAERS Safety Report 25886630 (Version 1)
Quarter: 2025Q4

REPORT INFORMATION
  Report Type: Spontaneous
  Country: JP (occurrence: JP)
  Receive Date: 20251006
  Receipt Date: 20251006
  Transmission Date: 20260118
  Serious: Yes (Other)
  Sender: MERCK SHARP & DOHME LLC
  Company Number: JP-009507513-2331533

PATIENT
  Age: 61 Year
  Sex: Female

DRUGS (2)
  1. KEYTRUDA [Suspect]
     Active Substance: PEMBROLIZUMAB
  2. KEYTRUDA [Suspect]
     Active Substance: PEMBROLIZUMAB
     Route: 041
     Dates: end: 20250718

REACTIONS (7)
  - Radiation pneumonitis [Recovering/Resolving]
  - Toothache [Unknown]
  - Anaemia [Recovered/Resolved]
  - Skin disorder [Unknown]
  - C-reactive protein increased [Recovered/Resolved]
  - Dental caries [Unknown]
  - Periodontal disease [Unknown]

NARRATIVE: CASE EVENT DATE: 20250101
